FAERS Safety Report 18795088 (Version 1)
Quarter: 2021Q1

REPORT INFORMATION
  Report Type: Report from Study
  Country: CN (occurrence: CN)
  Receive Date: 20210127
  Receipt Date: 20210127
  Transmission Date: 20210419
  Serious: Yes (Hospitalization)
  Sender: FDA-Public Use
  Company Number: CN-ROCHE-2356559

PATIENT
  Age: 81 Year
  Sex: Male
  Weight: 67 kg

DRUGS (34)
  1. DESLANOSIDE [Concomitant]
     Active Substance: DESLANOSIDE
     Route: 042
     Dates: start: 20191223, end: 20191223
  2. DICLOFENAC SODIUM. [Concomitant]
     Active Substance: DICLOFENAC SODIUM
     Route: 054
     Dates: start: 20191201, end: 20191204
  3. FUROSEMIDE. [Concomitant]
     Active Substance: FUROSEMIDE
     Indication: CEREBRAL INFARCTION
     Route: 042
     Dates: start: 20191207, end: 20191207
  4. FUROSEMIDE. [Concomitant]
     Active Substance: FUROSEMIDE
     Route: 042
     Dates: start: 20191215, end: 20191215
  5. AVELOX [Concomitant]
     Active Substance: MOXIFLOXACIN HYDROCHLORIDE
     Route: 042
     Dates: start: 20191207, end: 20191220
  6. COMPOUND IPRATROPIUM BROMIDE [Concomitant]
     Active Substance: IPRATROPIUM BROMIDE
     Dates: start: 20191212, end: 20191212
  7. SODIUM LACTATE RINGER^S [Concomitant]
     Indication: CEREBRAL INFARCTION
     Route: 042
     Dates: start: 20191223, end: 20191223
  8. SODIUM LACTATE RINGER^S [Concomitant]
     Route: 042
     Dates: start: 20191201, end: 20191201
  9. NIFEDIPINE. [Concomitant]
     Active Substance: NIFEDIPINE
     Route: 048
     Dates: start: 20180928
  10. CEFOPERAZONE SODIUM;TAZOBACTAM SODIUM [Concomitant]
     Route: 042
     Dates: start: 20191130, end: 20191223
  11. CEFOPERAZONE SODIUM;TAZOBACTAM SODIUM [Concomitant]
     Dates: start: 20191130, end: 20191130
  12. AMIODARONE HYDROCHLORIDE. [Concomitant]
     Active Substance: AMIODARONE HYDROCHLORIDE
     Route: 042
     Dates: start: 20191223, end: 20191223
  13. ACETYLCYSTEINE. [Concomitant]
     Active Substance: ACETYLCYSTEINE
     Dates: start: 20191212, end: 20191212
  14. NIFEDIPINE. [Concomitant]
     Active Substance: NIFEDIPINE
     Route: 048
     Dates: start: 20190829, end: 20190829
  15. NIFEDIPINE. [Concomitant]
     Active Substance: NIFEDIPINE
     Dates: end: 20191231
  16. SODIUM ACETATE RINGER [Concomitant]
     Indication: CEREBRAL INFARCTION
     Route: 042
     Dates: start: 20191204, end: 20191224
  17. SODIUM ACETATE RINGER [Concomitant]
     Route: 042
     Dates: start: 20191204, end: 20191204
  18. LACTULOSE. [Concomitant]
     Active Substance: LACTULOSE
     Indication: CEREBRAL INFARCTION
     Route: 048
     Dates: start: 20191204, end: 20191204
  19. INSULIN [Concomitant]
     Active Substance: INSULIN NOS
     Route: 058
     Dates: start: 20191130, end: 20191130
  20. FUROSEMIDE. [Concomitant]
     Active Substance: FUROSEMIDE
     Route: 042
     Dates: start: 20191220, end: 20191220
  21. AMBROXOL [Concomitant]
     Active Substance: AMBROXOL
     Route: 042
     Dates: start: 20191130, end: 20191224
  22. OXYCODONE HYDROCHLORIDE. [Concomitant]
     Active Substance: OXYCODONE HYDROCHLORIDE
     Indication: PAIN IN EXTREMITY
     Route: 048
     Dates: start: 20190829, end: 20190829
  23. MONOSIALOTETRAHEXOSYLGANGLIOSIDE SODIUM [Concomitant]
     Indication: CEREBRAL INFARCTION
     Route: 042
     Dates: start: 20191130, end: 20191204
  24. FUROSEMIDE. [Concomitant]
     Active Substance: FUROSEMIDE
     Route: 042
     Dates: start: 20191217, end: 20191218
  25. DICLOFENAC SODIUM. [Concomitant]
     Active Substance: DICLOFENAC SODIUM
     Route: 054
     Dates: start: 20191201, end: 20191201
  26. BUTYLPHTHALIDE AND SODIUM CHLORIDE [Concomitant]
     Active Substance: BUTYLPHTHALIDE
     Indication: CEREBRAL INFARCTION
  27. ATEZOLIZUMAB. [Suspect]
     Active Substance: ATEZOLIZUMAB
     Indication: NON-SMALL CELL LUNG CANCER
     Dosage: MOST RECENT DOSE ON 27/JUN/2019
     Route: 042
     Dates: start: 20180929
  28. FUROSEMIDE. [Concomitant]
     Active Substance: FUROSEMIDE
     Route: 042
     Dates: start: 20191212, end: 20191212
  29. LIVE COMBINED BIFIDOBACTERIUM, LACTOBACILUS AND ENTEROCOCCUS [Concomitant]
     Indication: PROPHYLAXIS
     Route: 048
     Dates: start: 20191211, end: 20191211
  30. POTASSIUM CHLORIDE. [Concomitant]
     Active Substance: POTASSIUM CHLORIDE
     Indication: CEREBRAL INFARCTION
     Route: 048
     Dates: start: 20191220, end: 20191220
  31. NOVOMIX 30 PENFILL [Concomitant]
     Active Substance: INSULIN ASPART
     Route: 058
     Dates: start: 20191204, end: 20191204
  32. ERYTHROMYCIN. [Concomitant]
     Active Substance: ERYTHROMYCIN
     Indication: CEREBRAL INFARCTION
     Dates: start: 20191213, end: 20191213
  33. SODIUM CHLORIDE. [Concomitant]
     Active Substance: SODIUM CHLORIDE
     Indication: CEREBRAL INFARCTION
     Dates: start: 20191130, end: 20191224
  34. ADALAT [Concomitant]
     Active Substance: NIFEDIPINE
     Route: 048
     Dates: start: 20190919, end: 20190919

REACTIONS (1)
  - Haemoptysis [Recovered/Resolved]

NARRATIVE: CASE EVENT DATE: 20190711
